FAERS Safety Report 6896256-6 (Version None)
Quarter: 2010Q3

REPORT INFORMATION
  Report Type: 
  Country: None (occurrence: None)
  Receive Date: 20100802
  Receipt Date: 20100730
  Transmission Date: 20110219
  Serious: Yes (Death)
  Sender: FDA-Public Use
  Company Number: A0873213A

PATIENT
  Age: 58 Year
  Sex: Male

DRUGS (4)
  1. LANOXIN [Suspect]
     Dosage: .25MG PER DAY
     Route: 048
     Dates: end: 20100430
  2. MEDICATION FOR HIGH BLOOD PRESSURE [Concomitant]
  3. DIABETES MEDICATION [Concomitant]
  4. BLOOD THINNER [Concomitant]

REACTIONS (3)
  - CONVULSION [None]
  - DEATH [None]
  - MYOCARDIAL INFARCTION [None]
